FAERS Safety Report 22131331 (Version 1)
Quarter: 2023Q1

REPORT INFORMATION
  Report Type: Spontaneous
  Country: US (occurrence: None)
  Receive Date: 20230322
  Receipt Date: 20230322
  Transmission Date: 20230417
  Serious: Yes (Hospitalization)
  Sender: FDA-Public Use
  Company Number: None

PATIENT
  Sex: Male

DRUGS (2)
  1. ARCALYST [Suspect]
     Active Substance: RILONACEPT
     Indication: Pericardial disease
     Dosage: FREQUENCY : AS DIRECTED;?
     Route: 058
  2. ARCALYST [Suspect]
     Active Substance: RILONACEPT
     Dosage: FREQUENCY : AS DIRECTED;?
     Route: 058

REACTIONS (3)
  - Pericardial disease [None]
  - Condition aggravated [None]
  - Social problem [None]
